FAERS Safety Report 4746025-8 (Version None)
Quarter: 2005Q3

REPORT INFORMATION
  Report Type: 
  Country: None (occurrence: None)
  Receive Date: 20050816
  Receipt Date: 20050608
  Transmission Date: 20060218
  Serious: Yes (Death, Life-Threatening, Hospitalization)
  Sender: FDA-Public Use
  Company Number: US-BRISTOL-MYERS SQUIBB COMPANY-12997128

PATIENT
  Age: 60 Year
  Sex: Male
  Weight: 82 kg

DRUGS (5)
  1. ABILIFY [Suspect]
     Indication: SCHIZOPHRENIA, PARANOID TYPE
     Dosage: DOSAGE: 10 MG - ONE-HALF TO ONE TABLET DAILY
     Route: 048
     Dates: start: 20050501, end: 20050524
  2. LOVENOX [Concomitant]
  3. STELAZINE [Concomitant]
     Indication: SCHIZOPHRENIA
  4. STELAZINE [Concomitant]
     Indication: BIPOLAR I DISORDER
  5. HEPARIN [Concomitant]
     Indication: THROMBOSIS PROPHYLAXIS

REACTIONS (15)
  - ALANINE AMINOTRANSFERASE INCREASED [None]
  - ASPARTATE AMINOTRANSFERASE INCREASED [None]
  - BLOOD URINE PRESENT [None]
  - CARDIO-RESPIRATORY ARREST [None]
  - DEEP VEIN THROMBOSIS [None]
  - DISSEMINATED INTRAVASCULAR COAGULATION [None]
  - ENCEPHALOPATHY [None]
  - HEPARIN-INDUCED THROMBOCYTOPENIA [None]
  - INSOMNIA [None]
  - KETONURIA [None]
  - LOSS OF CONSCIOUSNESS [None]
  - MANIA [None]
  - NEUROLEPTIC MALIGNANT SYNDROME [None]
  - PULMONARY EMBOLISM [None]
  - SOMNOLENCE [None]
